FAERS Safety Report 14662409 (Version 1)
Quarter: 2018Q1

REPORT INFORMATION
  Report Type: Other
  Country: AU (occurrence: AU)
  Receive Date: 20180321
  Receipt Date: 20180321
  Transmission Date: 20180509
  Serious: Yes (Life-Threatening, Hospitalization)
  Sender: FDA-Public Use
  Company Number: AU-WES PHARMA INC-2044179

PATIENT
  Age: 77 Year
  Sex: Female

DRUGS (6)
  1. OXYCODONE HYDROCHLORIDE. [Suspect]
     Active Substance: OXYCODONE HYDROCHLORIDE
     Indication: PRODUCT USED FOR UNKNOWN INDICATION
     Route: 065
  2. AMITRIPTYLINE [Concomitant]
     Active Substance: AMITRIPTYLINE
  3. TEMAZEPAM. [Suspect]
     Active Substance: TEMAZEPAM
     Route: 065
  4. SERTRALINE [Concomitant]
     Active Substance: SERTRALINE HYDROCHLORIDE
     Route: 065
  5. BUPRENORPHINE. [Concomitant]
     Active Substance: BUPRENORPHINE
     Route: 065
  6. DIAZEPAM. [Suspect]
     Active Substance: DIAZEPAM
     Route: 065

REACTIONS (17)
  - Accommodation disorder [Unknown]
  - Hypersomnia [Unknown]
  - Bruxism [Recovered/Resolved]
  - Impaired reasoning [Unknown]
  - Abnormal behaviour [Not Recovered/Not Resolved]
  - Condition aggravated [Unknown]
  - Overdose [Unknown]
  - Dysarthria [Unknown]
  - Panic disorder [Unknown]
  - Fall [Unknown]
  - Hypersensitivity [Unknown]
  - Restlessness [Unknown]
  - Memory impairment [Unknown]
  - Disturbance in attention [Unknown]
  - Judgement impaired [Unknown]
  - Paranoia [Unknown]
  - Drug abuse [Unknown]
